FAERS Safety Report 24661920 (Version 2)
Quarter: 2024Q4

REPORT INFORMATION
  Report Type: Spontaneous
  Country: JP (occurrence: JP)
  Receive Date: 20241125
  Receipt Date: 20241224
  Transmission Date: 20250115
  Serious: Yes (Hospitalization, Other)
  Sender: CSL BEHRING
  Company Number: JP-BEH-2024186277

PATIENT
  Age: 8 Decade
  Sex: Male

DRUGS (8)
  1. IDELVION [Suspect]
     Active Substance: COAGULATION FACTOR IX RECOMBINANT HUMAN
     Indication: Product used for unknown indication
     Dosage: 3500 IU, QW
     Route: 042
  2. IDELVION [Suspect]
     Active Substance: COAGULATION FACTOR IX RECOMBINANT HUMAN
     Indication: Product used for unknown indication
     Dosage: 3500 IU, QW
     Route: 042
  3. IDELVION [Suspect]
     Active Substance: COAGULATION FACTOR IX RECOMBINANT HUMAN
     Dosage: 3500 IU, SINGLE (BEFORE TACE)
     Route: 042
     Dates: start: 202409, end: 202409
  4. IDELVION [Suspect]
     Active Substance: COAGULATION FACTOR IX RECOMBINANT HUMAN
     Dosage: 3500 IU, SINGLE (BEFORE TACE)
     Route: 042
     Dates: start: 202409, end: 202409
  5. IDELVION [Suspect]
     Active Substance: COAGULATION FACTOR IX RECOMBINANT HUMAN
     Dosage: 3500 IU, SINGLE (AFTER TACE)
     Route: 042
     Dates: start: 202409, end: 202409
  6. IDELVION [Suspect]
     Active Substance: COAGULATION FACTOR IX RECOMBINANT HUMAN
     Dosage: 3500 IU, SINGLE (AFTER TACE)
     Route: 042
     Dates: start: 202409, end: 202409
  7. FEBUXOSTAT [Concomitant]
     Active Substance: FEBUXOSTAT
     Indication: Gout
     Dosage: UNK
     Route: 048
  8. FEBUXOSTAT [Concomitant]
     Active Substance: FEBUXOSTAT
     Indication: Hyperuricaemia

REACTIONS (1)
  - Hepatic cancer [Unknown]

NARRATIVE: CASE EVENT DATE: 20240901
